FAERS Safety Report 5331543-4 (Version None)
Quarter: 2007Q2

REPORT INFORMATION
  Report Type: 
  Country: None (occurrence: None)
  Receive Date: 20070522
  Receipt Date: 20070509
  Transmission Date: 20071010
  Serious: Yes (Death, Other)
  Sender: FDA-Public Use
  Company Number: ES-ELI_LILLY_AND_COMPANY-ES200705002554

PATIENT
  Age: 76 Year
  Sex: Male

DRUGS (5)
  1. FLUOXETINE HYDROCHLORIDE [Suspect]
     Dosage: 20 MG, DAILY (1/D)
     Dates: start: 20050101, end: 20060801
  2. CARBIDOPA AND LEVODOPA [Concomitant]
     Indication: PARKINSON'S DISEASE
     Dosage: 125 MG, EVERY 8 HRS
     Route: 048
     Dates: end: 20000801
  3. CARBIDOPA AND LEVODOPA [Concomitant]
     Dosage: 250 MG, EVERY 8 HRS
     Route: 045
     Dates: start: 20000801, end: 20000801
  4. SELEGILINE HCL [Concomitant]
     Dosage: 10 MG, DAILY (1/D)
     Dates: start: 20000801, end: 20000801
  5. CLONAZEPAM [Concomitant]
     Indication: MYOCLONUS
     Dates: start: 20000801, end: 20000801

REACTIONS (3)
  - CEREBRAL DISORDER [None]
  - FALL [None]
  - SEROTONIN SYNDROME [None]
